FAERS Safety Report 15650375 (Version 1)
Quarter: 2018Q4

REPORT INFORMATION
  Report Type: Spontaneous
  Country: US (occurrence: US)
  Receive Date: 20181123
  Receipt Date: 20181123
  Transmission Date: 20190205
  Serious: Yes (Other)
  Sender: FDA-Public Use
  Company Number: US-VIVIMED-2018SP005437

PATIENT

DRUGS (1)
  1. LOSARTAN. [Suspect]
     Active Substance: LOSARTAN
     Indication: ESSENTIAL HYPERTENSION
     Dosage: 10 MG DAILY, UNK
     Route: 048

REACTIONS (5)
  - Skin warm [Unknown]
  - Pruritus [Unknown]
  - Oedema [Recovered/Resolved]
  - Type I hypersensitivity [Unknown]
  - Pain [Unknown]
